FAERS Safety Report 6215421-4 (Version None)
Quarter: 2009Q2

REPORT INFORMATION
  Report Type: 
  Country: None (occurrence: None)
  Receive Date: 20090603
  Receipt Date: 20090528
  Transmission Date: 20091009
  Serious: Yes (Death)
  Sender: FDA-Public Use
  Company Number: 2009SP011642

PATIENT
  Age: 47 Year
  Sex: Female
  Weight: 83.4619 kg

DRUGS (2)
  1. TEMOZOLOMIDE [Suspect]
     Indication: BREAST CANCER METASTATIC
     Dosage: 100 MG/M2; PO
     Route: 048
     Dates: start: 20090312, end: 20090422
  2. IRINOTECAN (125 MG/M2) [Suspect]
     Indication: BREAST CANCER METASTATIC
     Dosage: 125 MG/M2, QOW; IV
     Route: 042
     Dates: start: 20090312, end: 20090416

REACTIONS (2)
  - FATIGUE [None]
  - REFUSAL OF TREATMENT BY PATIENT [None]
